FAERS Safety Report 6470413-5 (Version None)
Quarter: 2009Q4

REPORT INFORMATION
  Report Type: 
  Country: None (occurrence: None)
  Receive Date: 20091203
  Receipt Date: 20091130
  Transmission Date: 20100525
  Serious: Yes (Death)
  Sender: FDA-Public Use
  Company Number: US-GILEAD-2009-0025728

PATIENT
  Sex: Female
  Weight: 63.106 kg

DRUGS (8)
  1. LETAIRIS [Suspect]
     Indication: PULMONARY ARTERIAL HYPERTENSION
     Route: 048
     Dates: start: 20090918
  2. LASIX [Concomitant]
  3. ZOLOFT [Concomitant]
  4. ASACOL [Concomitant]
  5. LEVOTHROID [Concomitant]
  6. BALZIVA [Concomitant]
  7. SPIRIVA [Concomitant]
  8. FERROUS SULFATE TAB [Concomitant]

REACTIONS (1)
  - DEATH [None]
